FAERS Safety Report 6080994-1 (Version None)
Quarter: 2009Q1

REPORT INFORMATION
  Report Type: 
  Country: None (occurrence: None)
  Receive Date: 20090217
  Receipt Date: 20090209
  Transmission Date: 20090719
  Serious: No
  Sender: FDA-Public Use
  Company Number: US-B.I. PHARMACEUTICALS,INC./RIDGEFIELD-2009-BP-01361BP

PATIENT
  Sex: Male

DRUGS (9)
  1. SPIRIVA [Suspect]
     Indication: CHRONIC OBSTRUCTIVE PULMONARY DISEASE
     Dosage: 18MCG
     Route: 055
     Dates: start: 20071001
  2. SPIRIVA [Suspect]
     Indication: EMPHYSEMA
  3. PREVACID [Concomitant]
     Indication: GASTROOESOPHAGEAL REFLUX DISEASE
  4. PRAVASTATIN [Concomitant]
     Indication: BLOOD CHOLESTEROL INCREASED
  5. PLAVIX [Concomitant]
  6. FLOMAX [Concomitant]
     Indication: BENIGN PROSTATIC HYPERPLASIA
  7. TEMAZEPAM [Concomitant]
     Indication: SLEEP APNOEA SYNDROME
  8. XALATAN [Concomitant]
     Indication: GLAUCOMA
  9. FENISTRIDE [Concomitant]
     Indication: ALOPECIA

REACTIONS (4)
  - AGEUSIA [None]
  - ANOSMIA [None]
  - DYSGEUSIA [None]
  - PAROSMIA [None]
